FAERS Safety Report 4444471-3 (Version None)
Quarter: 2004Q3

REPORT INFORMATION
  Report Type: 
  Country: None (occurrence: None)
  Receive Date: 20040902
  Receipt Date: 20040818
  Transmission Date: 20050211
  Serious: Yes (Hospitalization, Other)
  Sender: FDA-Public Use
  Company Number: USA040466004

PATIENT
  Age: 53 Year
  Sex: Female

DRUGS (13)
  1. FORTEO [Suspect]
     Indication: OSTEOPOROSIS
     Dates: start: 20040201
  2. ENBREL [Concomitant]
  3. MOVICOX (MELOXICAM) [Concomitant]
  4. PREMPRO [Concomitant]
  5. FEMHRT [Concomitant]
  6. CALCIUM [Concomitant]
  7. MULTIVITAMIN [Concomitant]
  8. TRIAZOLAM [Concomitant]
  9. AMARYL [Concomitant]
  10. LISINOPRIL [Concomitant]
  11. NEXIUM [Concomitant]
  12. ZETIA [Concomitant]
  13. ACTIVELLE [Concomitant]

REACTIONS (4)
  - CONSTIPATION [None]
  - GALLBLADDER OPERATION [None]
  - PHARMACEUTICAL PRODUCT COMPLAINT [None]
  - POST PROCEDURAL PAIN [None]
